FAERS Safety Report 10756525 (Version 4)
Quarter: 2015Q1

REPORT INFORMATION
  Report Type: Spontaneous
  Country: US (occurrence: US)
  Receive Date: 20150202
  Receipt Date: 20150304
  Transmission Date: 20150721
  Serious: Yes (Hospitalization, Other)
  Sender: FDA-Public Use
  Company Number: US-GLAXOSMITHKLINE-A1085763A

PATIENT
  Sex: Female

DRUGS (7)
  1. TYKERB [Suspect]
     Active Substance: LAPATINIB DITOSYLATE
     Indication: BREAST CANCER METASTATIC
     Dosage: 750 MG, QD
     Route: 048
     Dates: start: 20130919
  2. LOSARTAN [Concomitant]
     Active Substance: LOSARTAN
  3. ACTOS [Concomitant]
     Active Substance: PIOGLITAZONE HYDROCHLORIDE
  4. TYKERB [Suspect]
     Active Substance: LAPATINIB DITOSYLATE
     Indication: BREAST CANCER
     Dosage: 500 MG, QD
     Route: 065
     Dates: start: 20130919
  5. AMARYL [Concomitant]
     Active Substance: GLIMEPIRIDE
  6. METFORMIN [Concomitant]
     Active Substance: METFORMIN HYDROCHLORIDE
  7. JANUVIA [Concomitant]
     Active Substance: SITAGLIPTIN PHOSPHATE

REACTIONS (3)
  - Dry skin [Unknown]
  - Skin haemorrhage [Unknown]
  - Pneumonia [Recovered/Resolved]
